FAERS Safety Report 17466922 (Version 1)
Quarter: 2020Q1

REPORT INFORMATION
  Report Type: Spontaneous
  Country: US (occurrence: US)
  Receive Date: 20200227
  Receipt Date: 20200227
  Transmission Date: 20200409
  Serious: No
  Sender: FDA-Public Use
  Company Number: US-ASTRAZENECA-2020SE27194

PATIENT
  Sex: Male

DRUGS (4)
  1. SYNAGIS [Suspect]
     Active Substance: PALIVIZUMAB
     Indication: TWIN PREGNANCY
     Dosage: 15.0MG/KG UNKNOWN
     Route: 030
     Dates: start: 20191213
  2. SYNAGIS [Suspect]
     Active Substance: PALIVIZUMAB
     Indication: PREMATURE BABY
     Dosage: 15.0MG/KG UNKNOWN
     Route: 030
     Dates: start: 20200124
  3. SYNAGIS [Suspect]
     Active Substance: PALIVIZUMAB
     Indication: TWIN PREGNANCY
     Dosage: 15.0MG/KG UNKNOWN
     Route: 030
     Dates: start: 20200124
  4. SYNAGIS [Suspect]
     Active Substance: PALIVIZUMAB
     Indication: PREMATURE BABY
     Dosage: 15.0MG/KG UNKNOWN
     Route: 030
     Dates: start: 20191213

REACTIONS (3)
  - Diarrhoea [Unknown]
  - Ulcer [Unknown]
  - Inappropriate schedule of product administration [Unknown]
